FAERS Safety Report 5406316-4 (Version None)
Quarter: 2007Q3

REPORT INFORMATION
  Report Type: 
  Country: None (occurrence: None)
  Receive Date: 20070806
  Receipt Date: 20070801
  Transmission Date: 20080115
  Serious: Yes (Death, Hospitalization)
  Sender: FDA-Public Use
  Company Number: LB-SANOFI-SYNTHELABO-A01200708313

PATIENT
  Age: 81 Year
  Sex: Female
  Weight: 74 kg

DRUGS (6)
  1. LASIX [Concomitant]
     Indication: DIURETIC THERAPY
     Route: 048
     Dates: end: 20070727
  2. MONOCINQUE [Concomitant]
     Indication: DRUG USE FOR UNKNOWN INDICATION
     Route: 048
     Dates: end: 20070727
  3. VASTAREL [Concomitant]
     Indication: ANGINA PECTORIS
     Route: 048
     Dates: end: 20070727
  4. LESCOL [Concomitant]
     Indication: HYPERCHOLESTEROLAEMIA
     Route: 048
     Dates: end: 20070727
  5. ASPIRIN [Concomitant]
     Indication: ANTIPLATELET THERAPY
     Route: 048
     Dates: end: 20070727
  6. PLAVIX [Suspect]
     Indication: ACUTE MYOCARDIAL INFARCTION
     Route: 048
     Dates: start: 20070507, end: 20070727

REACTIONS (5)
  - CARDIAC ARREST [None]
  - CYSTITIS [None]
  - HAEMATURIA [None]
  - MYOCARDIAL INFARCTION [None]
  - PULMONARY EMBOLISM [None]
